FAERS Safety Report 13185521 (Version 1)
Quarter: 2017Q1

REPORT INFORMATION
  Report Type: Report from Study
  Country: US (occurrence: IE)
  Receive Date: 20170203
  Receipt Date: 20170203
  Transmission Date: 20170428
  Serious: Yes (Other)
  Sender: FDA-Public Use
  Company Number: US-SUNOVION-2017SUN000424

PATIENT

DRUGS (8)
  1. CAPRIN [Concomitant]
     Active Substance: ASPIRIN
     Dosage: UNKNOWN
  2. AMLODIPINE [Concomitant]
     Active Substance: AMLODIPINE BESYLATE
     Dosage: UNKNOWN
  3. NEOCLARITYN [Concomitant]
     Active Substance: DESLORATADINE
     Dosage: UNKNOWN
  4. LIPITOR [Concomitant]
     Active Substance: ATORVASTATIN CALCIUM
     Dosage: UNKNOWN
  5. RAMILO [Concomitant]
     Active Substance: RAMIPRIL
     Dosage: UNKNOWN
  6. SALAMOL [Concomitant]
     Active Substance: ALBUTEROL
     Dosage: UNKNOWN
  7. INDACATEROL AND GLYCOPYRROLATE [Suspect]
     Active Substance: GLYCOPYRROLATE\INDACATEROL MALEATE
     Indication: CHRONIC OBSTRUCTIVE PULMONARY DISEASE
     Dosage: 1 DF(85 UG INDACATEROL/43 UG GLYCOPYRRONIUM BROMIDE), UNK
     Route: 055
     Dates: start: 20140611
  8. ELTROXIN [Concomitant]
     Active Substance: LEVOTHYROXINE
     Dosage: UNKNOWN

REACTIONS (1)
  - Cough [Unknown]

NARRATIVE: CASE EVENT DATE: 20170118
